FAERS Safety Report 7946582-4 (Version None)
Quarter: 2011Q4

REPORT INFORMATION
  Report Type: 
  Country: None (occurrence: None)
  Receive Date: 20111129
  Receipt Date: 20111121
  Transmission Date: 20120403
  Serious: Yes (Hospitalization)
  Sender: FDA-Public Use
  Company Number: US-AMGEN-USASP2011061395

PATIENT
  Age: 23 Year
  Sex: Male

DRUGS (5)
  1. SIMPONI [Concomitant]
     Dosage: UNK
     Dates: start: 20110801
  2. HUMIRA [Concomitant]
     Dosage: UNK
     Dates: start: 20100901
  3. ENBREL [Suspect]
     Indication: PSORIASIS
  4. ENBREL [Suspect]
     Indication: ANKYLOSING SPONDYLITIS
     Dosage: 50 MG, QWK
     Dates: start: 20070401
  5. REMICADE [Concomitant]
     Dosage: UNK
     Dates: start: 20090101

REACTIONS (8)
  - DRUG TOLERANCE INCREASED [None]
  - FEELING ABNORMAL [None]
  - SEBORRHOEIC DERMATITIS [None]
  - RASH GENERALISED [None]
  - ANKYLOSING SPONDYLITIS [None]
  - PSORIASIS [None]
  - ALOPECIA [None]
  - NASOPHARYNGITIS [None]
